FAERS Safety Report 17471796 (Version 1)
Quarter: 2020Q1

REPORT INFORMATION
  Report Type: Spontaneous
  Country: US (occurrence: US)
  Receive Date: 20200228
  Receipt Date: 20200228
  Transmission Date: 20200409
  Serious: No
  Sender: FDA-Public Use
  Company Number: US-GLAXOSMITHKLINE-US2020030194

PATIENT
  Sex: Male

DRUGS (3)
  1. VALACYCLOVIR [Suspect]
     Active Substance: VALACYCLOVIR HYDROCHLORIDE
     Dosage: UNK UNK, QD, TOOK TWO IN ONE DAY
     Route: 065
     Dates: start: 202002
  2. VALACYCLOVIR [Suspect]
     Active Substance: VALACYCLOVIR HYDROCHLORIDE
     Indication: ORAL HERPES
     Dosage: 500 MG, QD
     Route: 065
     Dates: start: 202002
  3. VALACYCLOVIR [Suspect]
     Active Substance: VALACYCLOVIR HYDROCHLORIDE
     Dosage: UNK UNK, QD, TOOK HALF A PILL DAY
     Route: 065
     Dates: start: 202002

REACTIONS (5)
  - Headache [Unknown]
  - Underdose [Unknown]
  - Burning sensation [Unknown]
  - Extra dose administered [Unknown]
  - Therapeutic response unexpected [Unknown]
